FAERS Safety Report 10685373 (Version 2)
Quarter: 2015Q1

REPORT INFORMATION
  Report Type: Spontaneous
  Country: US (occurrence: US)
  Receive Date: 20141231
  Receipt Date: 20150115
  Transmission Date: 20150720
  Serious: No
  Sender: FDA-Public Use
  Company Number: US-GLAXOSMITHKLINE-US2014GSK044168

PATIENT
  Age: 41 Year
  Sex: Male

DRUGS (8)
  1. ASPIRIN. [Concomitant]
     Active Substance: ASPIRIN
  2. LAMICTAL [Suspect]
     Active Substance: LAMOTRIGINE
     Dosage: 200 UNK, UNK
     Route: 048
     Dates: start: 201410
  3. PRILOSEC [Concomitant]
     Active Substance: OMEPRAZOLE MAGNESIUM
  4. ALPRAZOLAM. [Concomitant]
     Active Substance: ALPRAZOLAM
  5. BENTYL [Concomitant]
     Active Substance: DICYCLOMINE HYDROCHLORIDE
  6. LAMICTAL [Suspect]
     Active Substance: LAMOTRIGINE
     Indication: AFFECTIVE DISORDER
     Dosage: 150 MG, U
     Route: 065
  7. LOMOTIL [Concomitant]
     Active Substance: ATROPINE SULFATE\DIPHENOXYLATE HYDROCHLORIDE
  8. LAMICTAL [Suspect]
     Active Substance: LAMOTRIGINE
     Dosage: 100 UNK, UNK

REACTIONS (2)
  - Gastric disorder [Recovering/Resolving]
  - Drug dispensed to wrong patient [Unknown]

NARRATIVE: CASE EVENT DATE: 201410
